FAERS Safety Report 9914318 (Version 1)
Quarter: 2014Q1

REPORT INFORMATION
  Report Type: Spontaneous
  Country: US (occurrence: US)
  Receive Date: 20140220
  Receipt Date: 20140220
  Transmission Date: 20141002
  Serious: Yes (Other)
  Sender: FDA-Public Use
  Company Number: US-FRI-1000054226

PATIENT
  Age: 58 Year
  Sex: Male

DRUGS (4)
  1. FETZIMA [Suspect]
     Indication: DEPRESSION
     Dosage: 20MG
     Route: 048
     Dates: start: 20140207, end: 20140207
  2. EFFEXOR [Concomitant]
  3. REMERON [Concomitant]
  4. SEROQUEL [Concomitant]

REACTIONS (1)
  - Urinary retention [Recovered/Resolved]
